FAERS Safety Report 5318652-0 (Version None)
Quarter: 2007Q2

REPORT INFORMATION
  Report Type: 
  Country: None (occurrence: None)
  Receive Date: 20070508
  Receipt Date: 20070427
  Transmission Date: 20071010
  Serious: Yes (Hospitalization, Other)
  Sender: FDA-Public Use
  Company Number: PHHO2007AT07589

PATIENT
  Sex: Male

DRUGS (5)
  1. PRAXITEN [Concomitant]
  2. CIPRALEX [Concomitant]
  3. SEROQUEL [Concomitant]
  4. TEGRETOL [Suspect]
     Dosage: 200 MG, BID
     Route: 048
     Dates: start: 20061110, end: 20070128
  5. TEGRETOL [Suspect]
     Dosage: 200 MG, QD
     Route: 048
     Dates: start: 20070129, end: 20070131

REACTIONS (3)
  - DEPRESSION [None]
  - DIARRHOEA [None]
  - NEUTROPENIA [None]
